FAERS Safety Report 19270217 (Version 1)
Quarter: 2021Q2

REPORT INFORMATION
  Report Type: Spontaneous
  Country: FR (occurrence: FR)
  Receive Date: 20210518
  Receipt Date: 20210518
  Transmission Date: 20210717
  Serious: Yes (Hospitalization)
  Sender: FDA-Public Use
  Company Number: FR-PFIZER INC-2021496924

PATIENT
  Age: 65 Year
  Sex: Female

DRUGS (1)
  1. LORVIQUA [Suspect]
     Active Substance: LORLATINIB
     Indication: LUNG CANCER METASTATIC
     Dosage: 100 MG, DAILY
     Route: 048
     Dates: start: 20210205

REACTIONS (5)
  - Psychotic disorder [Recovering/Resolving]
  - Cognitive disorder [Recovering/Resolving]
  - Confusional state [Not Recovered/Not Resolved]
  - Speech disorder [Recovering/Resolving]
  - Affect lability [Recovering/Resolving]

NARRATIVE: CASE EVENT DATE: 202102
